FAERS Safety Report 20539655 (Version 1)
Quarter: 2022Q1

REPORT INFORMATION
  Report Type: Spontaneous
  Country: US (occurrence: US)
  Receive Date: 20220302
  Receipt Date: 20220302
  Transmission Date: 20220424
  Serious: Yes (Other)
  Sender: FDA-Public Use
  Company Number: US-JNJFOC-20211050582

PATIENT
  Age: 73 Year
  Sex: Male
  Weight: 136.20 kg

DRUGS (10)
  1. XARELTO [Suspect]
     Active Substance: RIVAROXABAN
     Indication: Atrial fibrillation
     Route: 048
     Dates: start: 202107
  2. XARELTO [Suspect]
     Active Substance: RIVAROXABAN
     Indication: Cerebrovascular accident prophylaxis
  3. INSULIN NOS [Suspect]
     Active Substance: INSULIN NOS
     Indication: Hyperglycaemia
     Route: 065
  4. LISINOPRIL [Concomitant]
     Active Substance: LISINOPRIL
  5. LEVOTHYROXINE [Concomitant]
     Active Substance: LEVOTHYROXINE
  6. MAGNESIUM [Concomitant]
     Active Substance: MAGNESIUM
  7. GABAPENTIN [Concomitant]
     Active Substance: GABAPENTIN
  8. CARVEDILOL [Concomitant]
     Active Substance: CARVEDILOL
  9. FUROSEMIDE [Concomitant]
     Active Substance: FUROSEMIDE
  10. COENZYME Q10 [TOCOPHERYL ACETATE;UBIDECARENONE] [Concomitant]

REACTIONS (1)
  - Hyperglycaemia [Unknown]

NARRATIVE: CASE EVENT DATE: 20210701
